FAERS Safety Report 5400217-3 (Version None)
Quarter: 2007Q3

REPORT INFORMATION
  Report Type: 
  Country: None (occurrence: None)
  Receive Date: 20070725
  Receipt Date: 20070708
  Transmission Date: 20080115
  Serious: Yes (Hospitalization, Other)
  Sender: FDA-Public Use
  Company Number: ENTC2007-0066

PATIENT
  Age: 75 Year
  Sex: Female

DRUGS (6)
  1. STALEVO 100 [Suspect]
     Indication: PARKINSON'S DISEASE
     Dosage: 450 MG (150 MG, 3 IN 1 D), 50 MG (50 MG, 1 IN 1 D), ORAL
     Route: 048
     Dates: start: 20070501, end: 20070501
  2. STALEVO 100 [Suspect]
     Indication: PARKINSON'S DISEASE
     Dosage: 450 MG (150 MG, 3 IN 1 D), 50 MG (50 MG, 1 IN 1 D), ORAL
     Route: 048
     Dates: start: 20040820
  3. MADOPAR [Suspect]
     Dosage: 100 MG
  4. XANOR [Concomitant]
     Dosage: 0, 5 DOSAGE FORM QD
  5. TEBONIN [Suspect]
     Dosage: 1 DOSAGE FORM QD
  6. HOFCOMANT [Suspect]
     Dosage: 1 DOSAGE FROM BID

REACTIONS (5)
  - COLITIS [None]
  - DECUBITUS ULCER [None]
  - DIVERTICULUM [None]
  - GENERAL PHYSICAL CONDITION ABNORMAL [None]
  - HALLUCINATION [None]
